FAERS Safety Report 17419548 (Version 4)
Quarter: 2020Q2

REPORT INFORMATION
  Report Type: Report from Study
  Country: None (occurrence: US)
  Receive Date: 20200214
  Receipt Date: 20200430
  Transmission Date: 20200713
  Serious: Yes (Hospitalization, Other)
  Sender: FDA-Public Use
  Company Number: US-ABBVIE-20P-163-3268122-00

PATIENT
  Age: 75 Year
  Sex: Male

DRUGS (2)
  1. IMBRUVICA [Suspect]
     Active Substance: IBRUTINIB
     Indication: CHRONIC LYMPHOCYTIC LEUKAEMIA
     Route: 048
     Dates: start: 20180806
  2. IMBRUVICA [Suspect]
     Active Substance: IBRUTINIB
     Indication: LYMPHOCYTIC LEUKAEMIA
     Route: 048
     Dates: start: 20180803

REACTIONS (6)
  - Gastrointestinal disorder [Unknown]
  - White blood cell count decreased [Unknown]
  - Exploratory operation [Unknown]
  - Abdominal operation [Unknown]
  - Product dose omission [Unknown]
  - Spinal operation [Unknown]

NARRATIVE: CASE EVENT DATE: 202003
